FAERS Safety Report 26021194 (Version 1)
Quarter: 2025Q4

REPORT INFORMATION
  Report Type: Spontaneous
  Country: EU (occurrence: EU)
  Receive Date: 20251110
  Receipt Date: 20251110
  Transmission Date: 20260117
  Serious: Yes (Hospitalization)
  Sender: BAUSCH AND LOMB
  Company Number: None

PATIENT
  Age: 61 Year
  Sex: Male
  Weight: 78.5 kg

DRUGS (6)
  1. VENLAFAXINE [Suspect]
     Active Substance: VENLAFAXINE HYDROCHLORIDE
     Indication: Poisoning deliberate
     Dosage: NP
     Route: 048
     Dates: start: 20251007, end: 20251007
  2. VENLAFAXINE [Suspect]
     Active Substance: VENLAFAXINE HYDROCHLORIDE
     Dosage: DOSE RE-INTRODUCED
     Route: 065
  3. LAMOTRIGINE [Suspect]
     Active Substance: LAMOTRIGINE
     Indication: Poisoning deliberate
     Dosage: NP
     Route: 048
     Dates: start: 20251007, end: 20251007
  4. LAMOTRIGINE [Suspect]
     Active Substance: LAMOTRIGINE
     Dosage: DOSE RE-INTRODUCED
     Route: 065
  5. CYAMEMAZINE [Suspect]
     Active Substance: CYAMEMAZINE
     Indication: Poisoning deliberate
     Dosage: NP
     Route: 048
     Dates: start: 20251007, end: 20251007
  6. CYAMEMAZINE [Suspect]
     Active Substance: CYAMEMAZINE
     Dosage: DOSE RE-INTRODUCED
     Route: 065

REACTIONS (2)
  - Poisoning deliberate [Recovered/Resolved]
  - Coma [Recovered/Resolved]

NARRATIVE: CASE EVENT DATE: 20251007
